FAERS Safety Report 5106052-8 (Version None)
Quarter: 2006Q3

REPORT INFORMATION
  Report Type: 
  Country: None (occurrence: None)
  Receive Date: 20060915
  Receipt Date: 20060906
  Transmission Date: 20061208
  Serious: Yes (Other)
  Sender: FDA-Public Use
  Company Number: JP-ABBOTT-06P-087-0343218-00

PATIENT
  Age: 41 Year
  Sex: Male

DRUGS (2)
  1. SEVOFLURANE [Suspect]
     Indication: ANAESTHESIA
  2. SEVOFLURANE [Suspect]

REACTIONS (1)
  - UNWANTED AWARENESS DURING ANAESTHESIA [None]
